FAERS Safety Report 6423713-9 (Version None)
Quarter: 2009Q4

REPORT INFORMATION
  Report Type: 
  Country: None (occurrence: None)
  Receive Date: 20091030
  Receipt Date: 20091030
  Transmission Date: 20100525
  Serious: Yes (Hospitalization)
  Sender: FDA-Public Use
  Company Number: None

PATIENT
  Sex: Female
  Weight: 82.15 kg

DRUGS (2)
  1. TAXOL [Suspect]
     Dosage: 329 MG
     Dates: end: 20091012
  2. TOPOTECAN [Suspect]
     Dosage: 1.41 MG
     Dates: end: 20091014

REACTIONS (5)
  - CONSTIPATION [None]
  - FEBRILE NEUTROPENIA [None]
  - HYPOAESTHESIA [None]
  - MALAISE [None]
  - PAIN [None]
